FAERS Safety Report 9391164 (Version 1)
Quarter: 2013Q3

REPORT INFORMATION
  Report Type: Spontaneous
  Country: US (occurrence: None)
  Receive Date: 20130705
  Receipt Date: 20130705
  Transmission Date: 20140515
  Serious: No
  Sender: FDA-Public Use
  Company Number: None

PATIENT
  Age: 63 Year
  Sex: Male

DRUGS (1)
  1. PROCRIT [Suspect]
     Dosage: EVERY 14 DAYS
     Route: 058
     Dates: start: 20130328

REACTIONS (1)
  - Abdominal pain [None]
